FAERS Safety Report 4865193-0 (Version None)
Quarter: 2005Q4

REPORT INFORMATION
  Report Type: 
  Country: None (occurrence: None)
  Receive Date: 20051223
  Receipt Date: 20040309
  Transmission Date: 20060501
  Serious: Yes (Hospitalization)
  Sender: FDA-Public Use
  Company Number: FR-GLAXOSMITHKLINE-B0326194A

PATIENT
  Age: 28 Year
  Sex: Male

DRUGS (3)
  1. ORBENINE [Suspect]
     Indication: PHARYNGITIS
     Dosage: 500MG PER DAY
     Route: 048
     Dates: start: 20031216, end: 20031216
  2. ZINNAT [Suspect]
     Indication: PHARYNGITIS
     Dosage: 500MG PER DAY
     Route: 048
     Dates: start: 20031216, end: 20031216
  3. PENTACARINAT [Suspect]
     Indication: LEISHMANIASIS
     Dosage: 300MG PER DAY
     Route: 030
     Dates: start: 20031215, end: 20031215

REACTIONS (7)
  - ALANINE AMINOTRANSFERASE INCREASED [None]
  - CYTOLYTIC HEPATITIS [None]
  - EOSINOPHILIA [None]
  - PROTHROMBIN TIME PROLONGED [None]
  - PURPURA [None]
  - PYREXIA [None]
  - TOXIC SKIN ERUPTION [None]
